FAERS Safety Report 24746901 (Version 1)
Quarter: 2024Q4

REPORT INFORMATION
  Report Type: Spontaneous
  Country: US (occurrence: US)
  Receive Date: 20241218
  Receipt Date: 20241218
  Transmission Date: 20250114
  Serious: No
  Sender: AMGEN
  Company Number: US-AMGEN-USASP2024244870

PATIENT
  Age: 79 Year
  Sex: Female

DRUGS (1)
  1. PROLIA [Suspect]
     Active Substance: DENOSUMAB
     Indication: Osteoporosis postmenopausal
     Dosage: 60 MILLIGRAM
     Route: 065
     Dates: start: 202406, end: 202412

REACTIONS (8)
  - Headache [Unknown]
  - Pruritus [Recovering/Resolving]
  - Muscular weakness [Recovering/Resolving]
  - Pain of skin [Recovering/Resolving]
  - Muscle spasms [Recovering/Resolving]
  - Oral discomfort [Recovering/Resolving]
  - Seasonal allergy [Unknown]
  - Paraesthesia oral [Recovering/Resolving]

NARRATIVE: CASE EVENT DATE: 20240101
